FAERS Safety Report 25908001 (Version 1)
Quarter: 2025Q4

REPORT INFORMATION
  Report Type: Report from Study
  Country: US (occurrence: US)
  Receive Date: 20251010
  Receipt Date: 20251010
  Transmission Date: 20260117
  Serious: Yes (Hospitalization)
  Sender: MALLINCKRODT
  Company Number: US-MALLINCKRODT-MNK202506142

PATIENT
  Sex: Female
  Weight: 110 kg

DRUGS (2)
  1. CORTICOTROPIN [Suspect]
     Active Substance: CORTICOTROPIN
     Indication: Polymyositis
     Dosage: UNKNOWN
  2. RITUXAN [Concomitant]
     Active Substance: RITUXIMAB
     Dosage: UNKNOWN

REACTIONS (4)
  - Hypercapnia [Not Recovered/Not Resolved]
  - Mobility decreased [Unknown]
  - Flushing [Unknown]
  - Asthenia [Unknown]
